FAERS Safety Report 4471328-4 (Version None)
Quarter: 2004Q3

REPORT INFORMATION
  Report Type: 
  Country: None (occurrence: None)
  Receive Date: 20040909
  Receipt Date: 20040526
  Transmission Date: 20050211
  Serious: Yes (Hospitalization)
  Sender: FDA-Public Use
  Company Number: F03200400044

PATIENT
  Age: 46 Year
  Sex: Female
  Weight: 58.0604 kg

DRUGS (4)
  1. OXALIPLATIN-SOLUTION-50MG/M2 [Suspect]
     Indication: PANCREATIC CARCINOMA
     Dosage: 50MG/M2 Q2W INTRAVENOUS NOS
     Route: 042
     Dates: start: 20040518, end: 20040518
  2. GEMCITABINE [Suspect]
     Indication: PANCREATIC CARCINOMA
  3. IRINOTECAN HCL [Suspect]
     Indication: PANCREATIC CARCINOMA
  4. LEUCOVORIN [Suspect]
     Indication: PANCREATIC CARCINOMA

REACTIONS (5)
  - ABDOMINAL PAIN [None]
  - ASTHENIA [None]
  - DEHYDRATION [None]
  - DIZZINESS [None]
  - STOMATITIS [None]
